FAERS Safety Report 8708393 (Version 3)
Quarter: 2013Q4

REPORT INFORMATION
  Report Type: Spontaneous
  Country: US (occurrence: US)
  Receive Date: 20120806
  Receipt Date: 20131101
  Transmission Date: 20140711
  Serious: No
  Sender: FDA-Public Use
  Company Number: US-009507513-1207USA002245

PATIENT
  Age: 50 Year
  Sex: Male
  Weight: 74.38 kg

DRUGS (10)
  1. VICTRELIS [Suspect]
     Dosage: 800 MG, TID
     Route: 048
  2. KLONOPIN [Concomitant]
     Dosage: 1 MG, UNK
  3. PEGASYS [Concomitant]
  4. NEXIUM [Concomitant]
     Dosage: 40 MG, UNK
  5. MICARDIS [Concomitant]
     Dosage: 20 MG, UNK
  6. PERCOCET [Concomitant]
     Dosage: 10-325 MG
  7. OXYCONTIN [Concomitant]
     Dosage: 10 MG, UNK
  8. RIBAPAK MIS [Concomitant]
     Dosage: 600 PER DAY
  9. TESTOSTERONE [Concomitant]
  10. ZOLOFT [Concomitant]

REACTIONS (9)
  - Abdominal discomfort [Unknown]
  - Cold sweat [Unknown]
  - Influenza like illness [Unknown]
  - Abnormal behaviour [Unknown]
  - Aggression [Unknown]
  - Feeling abnormal [Unknown]
  - Somnolence [Unknown]
  - Mood swings [Unknown]
  - Chills [Not Recovered/Not Resolved]
